FAERS Safety Report 5278629-0 (Version None)
Quarter: 2007Q1

REPORT INFORMATION
  Report Type: 
  Country: None (occurrence: None)
  Receive Date: 20070321
  Receipt Date: 20070306
  Transmission Date: 20070707
  Serious: Yes (Hospitalization)
  Sender: FDA-Public Use
  Company Number: A-JP2007-14473

PATIENT
  Age: 66 Year
  Sex: Female

DRUGS (2)
  1. TRACLEER [Suspect]
     Indication: PULMONARY HYPERTENSION
     Dosage: SEE IMAGE
     Route: 048
     Dates: end: 20070223
  2. TRACLEER [Suspect]
     Indication: PULMONARY HYPERTENSION
     Dosage: SEE IMAGE
     Route: 048
     Dates: start: 20060824

REACTIONS (9)
  - ANTI-NEUTROPHIL CYTOPLASMIC ANTIBODY POSITIVE VASCULITIS [None]
  - DEEP VEIN THROMBOSIS [None]
  - ERYTHEMA [None]
  - HOT FLUSH [None]
  - INFLAMMATION [None]
  - OEDEMA PERIPHERAL [None]
  - PAIN [None]
  - PURPURA [None]
  - WHITE BLOOD CELL COUNT INCREASED [None]
